FAERS Safety Report 13717661 (Version 1)
Quarter: 2017Q3

REPORT INFORMATION
  Report Type: Spontaneous
  Country: ES (occurrence: ES)
  Receive Date: 20170705
  Receipt Date: 20170705
  Transmission Date: 20171127
  Serious: Yes (Other)
  Sender: FDA-Public Use
  Company Number: ES-PFIZER INC-2017288322

PATIENT

DRUGS (2)
  1. IBUPROFEN. [Suspect]
     Active Substance: IBUPROFEN
     Indication: INFLUENZA LIKE ILLNESS
     Dosage: UNK
  2. ASPIRIN /00002701/ [Suspect]
     Active Substance: ASPIRIN
     Indication: INFLUENZA LIKE ILLNESS
     Dosage: UNK

REACTIONS (1)
  - Tubulointerstitial nephritis [Recovered/Resolved]
